FAERS Safety Report 6652822-4 (Version None)
Quarter: 2010Q1

REPORT INFORMATION
  Report Type: 
  Country: None (occurrence: None)
  Receive Date: 20100325
  Receipt Date: 20100325
  Transmission Date: 20100710
  Serious: Yes (Life-Threatening)
  Sender: FDA-Public Use
  Company Number: None

PATIENT
  Age: 62 Year
  Sex: Female
  Weight: 60.3284 kg

DRUGS (2)
  1. CEFOTETAN [Suspect]
     Indication: APPENDICECTOMY
     Dosage: ONE TIME
     Dates: start: 20100326, end: 20100326
  2. STEROIDS [Concomitant]

REACTIONS (1)
  - HAEMOLYTIC ANAEMIA [None]
